FAERS Safety Report 22306633 (Version 1)
Quarter: 2023Q2

REPORT INFORMATION
  Report Type: Report from Study
  Country: US (occurrence: US)
  Receive Date: 20230511
  Receipt Date: 20230511
  Transmission Date: 20230722
  Serious: No
  Sender: FDA-Public Use
  Company Number: US-ABBVIE-4749125

PATIENT
  Age: 54 Year
  Sex: Female

DRUGS (18)
  1. UPADACITINIB [Suspect]
     Active Substance: UPADACITINIB
     Indication: Colitis ulcerative
     Route: 048
     Dates: start: 20171023
  2. IMODIUM [Concomitant]
     Active Substance: LOPERAMIDE HYDROCHLORIDE
     Indication: Colitis ulcerative
     Dosage: PRN
     Route: 048
     Dates: start: 20170130
  3. ONDANSETRON [Concomitant]
     Active Substance: ONDANSETRON
     Indication: Nausea
     Dosage: TIME INTERVAL: AS NECESSARY: 1-2 TABS Q8 HOURS PRN
     Route: 048
     Dates: start: 20170421
  4. LOSARTAN [Concomitant]
     Active Substance: LOSARTAN
     Indication: Hypertension
     Route: 048
     Dates: start: 20180114
  5. MIRALAX [Concomitant]
     Active Substance: POLYETHYLENE GLYCOL 3350
     Indication: Constipation
     Route: 048
     Dates: start: 20180119
  6. PSYLLIUM POWDER [Concomitant]
     Indication: Gastrointestinal motility disorder
     Dosage: 0.5 TSP
     Route: 048
     Dates: start: 20180418
  7. LISINOPRIL [Concomitant]
     Active Substance: LISINOPRIL
     Indication: Hypertension
     Route: 048
     Dates: start: 20170401
  8. PRAVASTANTIN [Concomitant]
     Indication: Hyperlipidaemia
     Route: 048
     Dates: start: 20161201
  9. VITAMINS [Concomitant]
     Active Substance: VITAMINS
     Indication: Routine health maintenance
     Dosage: 1 TABLET
     Route: 048
     Dates: start: 20170401
  10. FOLIC ACID [Concomitant]
     Active Substance: FOLIC ACID
     Indication: Routine health maintenance
     Route: 048
     Dates: start: 20170401
  11. LANTUS [Concomitant]
     Active Substance: INSULIN GLARGINE
     Indication: Diabetes mellitus
     Dosage: 10 UNITS
     Route: 058
     Dates: start: 20170512
  12. VITAMIN D3 [Concomitant]
     Active Substance: CHOLECALCIFEROL
     Indication: Routine health maintenance
     Route: 048
     Dates: start: 20170301
  13. PRANDIN [Concomitant]
     Active Substance: REPAGLINIDE
     Indication: Diabetes mellitus
     Dosage: PRN
     Route: 048
     Dates: start: 20170512
  14. PREDNISONE [Concomitant]
     Active Substance: PREDNISONE
     Indication: Colitis ulcerative
     Route: 048
     Dates: start: 20170722
  15. BENTYL [Concomitant]
     Active Substance: DICYCLOMINE HYDROCHLORIDE
     Indication: Colitis ulcerative
     Dosage: Q 4-6 HOURS PRN
     Route: 048
     Dates: start: 20170303
  16. NEXIUM [Concomitant]
     Active Substance: ESOMEPRAZOLE MAGNESIUM
     Indication: Gastrooesophageal reflux disease
     Route: 048
     Dates: start: 20170201
  17. CALCIUM [Concomitant]
     Active Substance: CALCIUM
     Indication: Routine health maintenance
     Route: 048
     Dates: start: 20170401
  18. AMARYL [Concomitant]
     Active Substance: GLIMEPIRIDE
     Indication: Diabetes mellitus
     Route: 048
     Dates: start: 20170215

REACTIONS (1)
  - Hepatocellular injury [Not Recovered/Not Resolved]

NARRATIVE: CASE EVENT DATE: 20181016
